FAERS Safety Report 19501597 (Version 3)
Quarter: 2021Q4

REPORT INFORMATION
  Report Type: Spontaneous
  Country: JP (occurrence: JP)
  Receive Date: 20210707
  Receipt Date: 20211020
  Transmission Date: 20220303
  Serious: Yes (Hospitalization, Disabling, Other)
  Sender: FDA-Public Use
  Company Number: JP-BRISTOL-MYERS SQUIBB COMPANY-BMS-2021-064306

PATIENT
  Age: 75 Year
  Sex: Male
  Weight: 61.2 kg

DRUGS (9)
  1. YERVOY [Suspect]
     Active Substance: IPILIMUMAB
     Indication: Malignant melanoma
     Dosage: 190 MILLIGRAM, ONE TIME DOSE
     Route: 041
     Dates: start: 20210423, end: 20210423
  2. OPDIVO [Suspect]
     Active Substance: NIVOLUMAB
     Indication: Malignant melanoma
     Dosage: 80 MILLIGRAM, ONE TIME DOSE
     Route: 041
     Dates: start: 20210423, end: 20210423
  3. PHENYTOIN [Suspect]
     Active Substance: PHENYTOIN
     Indication: Seizure
     Dosage: UNK
     Route: 065
  4. OMEPRAZOLE [Suspect]
     Active Substance: OMEPRAZOLE
     Indication: Prophylaxis
     Dosage: UNK
     Route: 065
  5. OLMESARTAN [Concomitant]
     Active Substance: OLMESARTAN
     Indication: Product used for unknown indication
     Dosage: UNK
     Route: 065
  6. AMLODIPINE [Concomitant]
     Active Substance: AMLODIPINE BESYLATE
     Indication: Product used for unknown indication
     Dosage: UNK
     Route: 065
  7. RABEPRAZOLE SODIUM [Concomitant]
     Active Substance: RABEPRAZOLE SODIUM
     Indication: Product used for unknown indication
     Dosage: UNK
     Route: 065
  8. BEPRIDIL [Concomitant]
     Active Substance: BEPRIDIL
     Indication: Product used for unknown indication
     Dosage: UNK
     Route: 065
  9. BIO-THREE [Concomitant]
     Active Substance: HERBALS
     Indication: Product used for unknown indication
     Dosage: UNK
     Route: 065

REACTIONS (8)
  - Immune-mediated nephritis [Recovering/Resolving]
  - Diarrhoea [Recovered/Resolved]
  - Immune-mediated enterocolitis [Recovering/Resolving]
  - Decreased appetite [Unknown]
  - Movement disorder [Unknown]
  - Seizure [Unknown]
  - Drug reaction with eosinophilia and systemic symptoms [Unknown]
  - Generalised tonic-clonic seizure [Unknown]

NARRATIVE: CASE EVENT DATE: 20210505
